FAERS Safety Report 4603084-0 (Version None)
Quarter: 2005Q1

REPORT INFORMATION
  Report Type: 
  Country: None (occurrence: None)
  Receive Date: 20050214
  Receipt Date: 20041206
  Transmission Date: 20050727
  Serious: No
  Sender: FDA-Public Use
  Company Number: USA041285377

PATIENT
  Age: 73 Year
  Sex: Male

DRUGS (7)
  1. CIALIS [Suspect]
     Indication: ERECTILE DYSFUNCTION
     Dosage: 20 MG
  2. ZOCOR (SIMVASTATIN RATIOPHARM) [Concomitant]
  3. WELLBUTRIN [Concomitant]
  4. VITAMINS [Concomitant]
  5. COMBIVENT [Concomitant]
  6. NASAREL (FLUNISOLIDE) [Concomitant]
  7. FLOVENT [Concomitant]

REACTIONS (3)
  - DRUG INEFFECTIVE [None]
  - THERAPEUTIC RESPONSE DECREASED [None]
  - TRANSURETHRAL PROSTATECTOMY [None]
